FAERS Safety Report 21605512 (Version 2)
Quarter: 2025Q3

REPORT INFORMATION
  Report Type: Spontaneous
  Country: JP (occurrence: JP)
  Receive Date: 20221116
  Receipt Date: 20250807
  Transmission Date: 20251021
  Serious: Yes (Death)
  Sender: JAZZ
  Company Number: JP-JAZZ-2022-JP-035386

PATIENT
  Age: 13 Year
  Sex: Male
  Weight: 46.3 kg

DRUGS (1)
  1. DEFITELIO [Suspect]
     Active Substance: DEFIBROTIDE SODIUM
     Indication: Venoocclusive liver disease
     Dates: start: 20220714, end: 20220801

REACTIONS (1)
  - Acute lymphocytic leukaemia [Fatal]
